FAERS Safety Report 6214947-7 (Version None)
Quarter: 2009Q2

REPORT INFORMATION
  Report Type: 
  Country: None (occurrence: None)
  Receive Date: 20090601
  Receipt Date: 20080522
  Transmission Date: 20091009
  Serious: Yes (Other)
  Sender: FDA-Public Use
  Company Number: 275613

PATIENT
  Age: 65 Year
  Sex: Female

DRUGS (3)
  1. ACTIVELLA [Suspect]
     Indication: HORMONE REPLACEMENT THERAPY
     Dosage: ORAL
     Route: 048
  2. PRAMIPEXOLE DIHYDROCHLORIDE [Suspect]
     Indication: PARKINSON'S DISEASE
     Dosage: ORAL
     Route: 048
     Dates: start: 20060417
  3. DEPAKOTE [Concomitant]

REACTIONS (1)
  - BREAST CANCER [None]
